FAERS Safety Report 7295209-6 (Version None)
Quarter: 2011Q1

REPORT INFORMATION
  Report Type: 
  Country: None (occurrence: None)
  Receive Date: 20110216
  Receipt Date: 20101206
  Transmission Date: 20110831
  Serious: No
  Sender: FDA-Public Use
  Company Number: A0899034A

PATIENT
  Age: 78 Year
  Sex: Female

DRUGS (5)
  1. ZOCOR [Concomitant]
  2. VERAPAMIL [Concomitant]
  3. VOTRIENT [Suspect]
     Dosage: 800MG PER DAY
     Route: 048
     Dates: start: 20101009
  4. LEVOTHYROXINE SODIUM [Concomitant]
  5. HYDRALAZINE [Concomitant]

REACTIONS (1)
  - PROTEINURIA [None]
